FAERS Safety Report 14678745 (Version 3)
Quarter: 2023Q4

REPORT INFORMATION
  Report Type: Spontaneous
  Country: ES (occurrence: ES)
  Receive Date: 20180326
  Receipt Date: 20231120
  Transmission Date: 20240110
  Serious: Yes (Hospitalization, Other)
  Sender: FDA-Public Use
  Company Number: ES-AUROBINDO-AUR-APL-2018-016155

PATIENT
  Age: 98 Year
  Sex: Male

DRUGS (7)
  1. BISOPROLOL [Suspect]
     Active Substance: BISOPROLOL\BISOPROLOL FUMARATE
     Indication: Product used for unknown indication
     Dosage: 1 ONCE A DAY
     Route: 048
     Dates: start: 20170324
  2. ENALAPRIL [Suspect]
     Active Substance: ENALAPRIL
     Indication: Product used for unknown indication
     Dosage: 5 MILLIGRAM, ONCE A DAY
     Route: 048
     Dates: start: 20151228, end: 20170910
  3. CHLORTHALIDONE [Suspect]
     Active Substance: CHLORTHALIDONE
     Indication: Product used for unknown indication
     Dosage: 25 MILLIGRAM, ONCE A DAY, 1/2 CP DIA
     Route: 048
  4. CHLORTHALIDONE [Suspect]
     Active Substance: CHLORTHALIDONE
     Dosage: 25 MILLIGRAM, ONCE A DAY
     Route: 048
     Dates: start: 20170629, end: 20170910
  5. FUROSEMIDE [Suspect]
     Active Substance: FUROSEMIDE
     Indication: Product used for unknown indication
     Dosage: BID (2)
     Route: 048
     Dates: start: 20100420, end: 20170910
  6. ATORVASTATIN [Concomitant]
     Active Substance: ATORVASTATIN
     Indication: Product used for unknown indication
     Dosage: 1, ONCE A DAY
     Route: 048
     Dates: start: 20170324
  7. SINTROM [Concomitant]
     Active Substance: ACENOCOUMAROL
     Indication: Product used for unknown indication
     Dosage: SP
     Route: 048
     Dates: start: 20160217

REACTIONS (2)
  - Acute kidney injury [Recovered/Resolved]
  - Drug interaction [Unknown]

NARRATIVE: CASE EVENT DATE: 20170910
